FAERS Safety Report 9234442 (Version 1)
Quarter: 2013Q2

REPORT INFORMATION
  Report Type: Spontaneous
  Country: US (occurrence: US)
  Receive Date: 20130416
  Receipt Date: 20130416
  Transmission Date: 20140414
  Serious: Yes (Hospitalization)
  Sender: FDA-Public Use
  Company Number: US-GLAXOSMITHKLINE-A0978272A

PATIENT
  Sex: Female

DRUGS (1)
  1. VENTOLIN [Suspect]
     Indication: WHEEZING
     Dosage: 2PUFF FOUR TIMES PER DAY
     Route: 055
     Dates: start: 20060210

REACTIONS (3)
  - Adverse reaction [Unknown]
  - Product quality issue [Unknown]
  - Accident [Unknown]
